FAERS Safety Report 10347958 (Version 2)
Quarter: 2014Q3

REPORT INFORMATION
  Report Type: Spontaneous
  Country: US (occurrence: US)
  Receive Date: 20140729
  Receipt Date: 20140729
  Transmission Date: 20150326
  Serious: Yes (Hospitalization, Disabling, Other)
  Sender: FDA-Public Use
  Company Number: US-009507513-2011SP033361

PATIENT
  Sex: Female
  Weight: 130.18 kg

DRUGS (3)
  1. MEDROL [Concomitant]
     Active Substance: METHYLPREDNISOLONE
     Indication: URINARY TRACT INFECTION
     Dates: start: 200907
  2. NUVARING [Suspect]
     Active Substance: ETHINYL ESTRADIOL\ETONOGESTREL
     Indication: CONTRACEPTION
     Dates: start: 20080919, end: 20090723
  3. PROVENTIL [Concomitant]
     Active Substance: ALBUTEROL
     Dosage: ^ALBUTEROL SALINE SOLUTION^
     Dates: start: 2004

REACTIONS (13)
  - Urinary tract infection [Unknown]
  - Nerve compression [Unknown]
  - Muscle spasms [Unknown]
  - Hypertension [Unknown]
  - Asthma [Recovering/Resolving]
  - Urticaria [Unknown]
  - Pulmonary embolism [Recovering/Resolving]
  - Deep vein thrombosis [Recovering/Resolving]
  - Mammoplasty [Unknown]
  - Leukocytosis [Unknown]
  - Lymphadenopathy [Unknown]
  - Hypokalaemia [Unknown]
  - Rash [Unknown]

NARRATIVE: CASE EVENT DATE: 20090414
